FAERS Safety Report 12958377 (Version 1)
Quarter: 2016Q4

REPORT INFORMATION
  Report Type: Spontaneous
  Country: US (occurrence: US)
  Receive Date: 20161121
  Receipt Date: 20161121
  Transmission Date: 20170207
  Serious: No
  Sender: FDA-Public Use
  Company Number: US-ASTRAZENECA-2016SF18668

PATIENT
  Age: 840 Month
  Sex: Male
  Weight: 93 kg

DRUGS (9)
  1. MELOXICAM. [Concomitant]
     Active Substance: MELOXICAM
  2. SIMVASTATIN. [Suspect]
     Active Substance: SIMVASTATIN
     Indication: BLOOD CHOLESTEROL INCREASED
     Dosage: 20 MG, ONE TABLET BY MOUTH DAILY
     Route: 048
  3. ELIQUIS [Concomitant]
     Active Substance: APIXABAN
  4. BABY ASPIRIN [Concomitant]
     Active Substance: ASPIRIN
  5. LIPITOR [Suspect]
     Active Substance: ATORVASTATIN CALCIUM
     Indication: BLOOD CHOLESTEROL INCREASED
     Dosage: UNKNOWN
     Route: 065
     Dates: start: 2003
  6. METOPROLOL. [Concomitant]
     Active Substance: METOPROLOL
  7. LIPITOR [Suspect]
     Active Substance: ATORVASTATIN CALCIUM
     Indication: BLOOD CHOLESTEROL INCREASED
     Dosage: 20 MG ATORVASTATIN CALCIUM, TAKE ONE TABLET DAILY
     Route: 048
  8. DIOXIN [Concomitant]
  9. CRESTOR [Suspect]
     Active Substance: ROSUVASTATIN CALCIUM
     Indication: BLOOD CHOLESTEROL INCREASED
     Dosage: 10 MG, TAKE ONE HALF TABLET EVERY EVENING
     Route: 048
     Dates: start: 2016, end: 201610

REACTIONS (4)
  - Muscular weakness [Recovering/Resolving]
  - Myalgia [Recovering/Resolving]
  - Atrial fibrillation [Recovering/Resolving]
  - Muscle disorder [Recovering/Resolving]

NARRATIVE: CASE EVENT DATE: 201609
